FAERS Safety Report 13037509 (Version 3)
Quarter: 2017Q1

REPORT INFORMATION
  Report Type: Spontaneous
  Country: US (occurrence: US)
  Receive Date: 20161217
  Receipt Date: 20170307
  Transmission Date: 20170428
  Serious: Yes (Other)
  Sender: FDA-Public Use
  Company Number: US-009507513-1612USA006697

PATIENT
  Age: 14 Year
  Sex: Male
  Weight: 50 kg

DRUGS (8)
  1. PRINIVIL [Suspect]
     Active Substance: LISINOPRIL
     Indication: CARDIOMYOPATHY
  2. CARVEDILOL. [Suspect]
     Active Substance: CARVEDILOL
     Indication: CARDIOMYOPATHY
  3. FUROSEMIDE. [Suspect]
     Active Substance: FUROSEMIDE
     Indication: MITOCHONDRIAL CYTOPATHY
     Route: 048
  4. CARVEDILOL. [Suspect]
     Active Substance: CARVEDILOL
     Indication: MITOCHONDRIAL CYTOPATHY
  5. FUROSEMIDE. [Suspect]
     Active Substance: FUROSEMIDE
     Indication: CARDIOMYOPATHY
  6. SPIRONOLACTONE. [Suspect]
     Active Substance: SPIRONOLACTONE
     Indication: CARDIOMYOPATHY
  7. PRINIVIL [Suspect]
     Active Substance: LISINOPRIL
     Indication: MITOCHONDRIAL CYTOPATHY
     Route: 048
  8. SPIRONOLACTONE. [Suspect]
     Active Substance: SPIRONOLACTONE
     Indication: MITOCHONDRIAL CYTOPATHY

REACTIONS (1)
  - Cardiac failure congestive [Recovered/Resolved]
